FAERS Safety Report 8942553 (Version 1)
Quarter: 2012Q4

REPORT INFORMATION
  Report Type: 
  Country: IN (occurrence: IN)
  Receive Date: 20121204
  Receipt Date: 20121204
  Transmission Date: 20130627
  Serious: Yes (Other)
  Sender: FDA-Public Use
  Company Number: IN-ELI_LILLY_AND_COMPANY-IN201203005813

PATIENT
  Age: 34 Year
  Sex: Female

DRUGS (1)
  1. HUMALOG 50% LISPRO, 50% NPL [Suspect]
     Indication: GESTATIONAL DIABETES
     Dosage: UNK
     Dates: start: 20120314

REACTIONS (2)
  - Premature labour [Recovered/Resolved]
  - Exposure during pregnancy [Recovered/Resolved]
